FAERS Safety Report 9752122 (Version 1)
Quarter: 2013Q4

REPORT INFORMATION
  Report Type: Spontaneous
  Country: US (occurrence: US)
  Receive Date: 20131213
  Receipt Date: 20131213
  Transmission Date: 20140711
  Serious: Yes (Hospitalization, Other)
  Sender: FDA-Public Use
  Company Number: US-AMGEN-USASP2013087309

PATIENT
  Age: 52 Year
  Sex: Female

DRUGS (1)
  1. ENBREL [Suspect]
     Indication: RHEUMATOID ARTHRITIS
     Dosage: 50 MG, QWK
     Route: 065
     Dates: start: 20121114

REACTIONS (10)
  - Dehydration [Recovered/Resolved]
  - Starvation [Recovered/Resolved]
  - Syncope [Recovered/Resolved]
  - Back pain [Recovered/Resolved]
  - Fall [Recovered/Resolved]
  - Bedridden [Recovered/Resolved]
  - Arthralgia [Recovered/Resolved]
  - Weight decreased [Not Recovered/Not Resolved]
  - Injection site mass [Recovered/Resolved]
  - Injection site swelling [Recovered/Resolved]
